FAERS Safety Report 15672955 (Version 1)
Quarter: 2018Q4

REPORT INFORMATION
  Report Type: Report from Study
  Country: US (occurrence: US)
  Receive Date: 20181129
  Receipt Date: 20181129
  Transmission Date: 20190205
  Serious: Yes (Other)
  Sender: FDA-Public Use
  Company Number: US-TESARO, INC-US-2018TSO03663

PATIENT
  Age: 59 Year
  Sex: Female
  Weight: 45.79 kg

DRUGS (3)
  1. ZEJULA [Suspect]
     Active Substance: NIRAPARIB
     Dosage: 100 MG, ONE CAPSULE A DAY IN THE MORNING WITH FOOD
     Route: 048
     Dates: start: 201808
  2. ZEJULA [Suspect]
     Active Substance: NIRAPARIB
     Dosage: 1 (100 MG) CAPSULE EVERY DAY EXCEPT 2 (200 MG) CAPSULES ON TUESDAY AND FRIDAY
     Route: 048
     Dates: start: 201810
  3. ZEJULA [Suspect]
     Active Substance: NIRAPARIB
     Indication: OVARIAN CANCER
     Dosage: 200 MG, QD
     Route: 048
     Dates: start: 20180713

REACTIONS (13)
  - Tumour marker increased [Unknown]
  - Headache [Not Recovered/Not Resolved]
  - Malaise [Recovered/Resolved]
  - Decreased appetite [Not Recovered/Not Resolved]
  - Blood pressure increased [Recovering/Resolving]
  - Middle insomnia [Recovered/Resolved]
  - Intentional underdose [Not Recovered/Not Resolved]
  - Tendonitis [Not Recovered/Not Resolved]
  - Dyspepsia [Unknown]
  - Groin pain [Unknown]
  - Anxiety [Not Recovered/Not Resolved]
  - Musculoskeletal pain [Unknown]
  - Arthralgia [Unknown]

NARRATIVE: CASE EVENT DATE: 20180713
